FAERS Safety Report 9261508 (Version 2)
Quarter: 2013Q2

REPORT INFORMATION
  Report Type: Spontaneous
  Country: US (occurrence: US)
  Receive Date: 20130429
  Receipt Date: 20130625
  Transmission Date: 20140414
  Serious: Yes (Other)
  Sender: FDA-Public Use
  Company Number: US-PERRIGO-13US004219

PATIENT
  Age: 68 Year
  Sex: Female
  Weight: 108.39 kg

DRUGS (12)
  1. CALCIUM POLYCARBOPHIL 625 MG 477 [Suspect]
     Indication: SUPPLEMENTATION THERAPY
     Dosage: 1250 MG, QD
     Route: 048
     Dates: start: 201211, end: 201212
  2. CALCIUM POLYCARBOPHIL 625 MG 477 [Suspect]
     Dosage: 1250 MG, SINGLE
     Route: 048
     Dates: start: 20130414, end: 20130414
  3. DIPHENHYDRAMINE HYDROCHLORIDE 25 MG 479 [Suspect]
     Indication: HYPERSENSITIVITY
     Dosage: 50 MG, QD
     Route: 048
     Dates: start: 201211
  4. VITAMIN D [Suspect]
     Indication: SUPPLEMENTATION THERAPY
     Dosage: 5000 IU, QD
     Route: 048
     Dates: start: 201211
  5. ENALAPRIL [Suspect]
     Indication: PRODUCT USED FOR UNKNOWN INDICATION
     Dosage: UNK, UNK
     Route: 048
     Dates: start: 1998, end: 20121229
  6. AIRBORNE [Suspect]
     Indication: SUPPLEMENTATION THERAPY
     Dosage: UNK, UNK
     Route: 048
     Dates: start: 201212
  7. GLYBURIDE [Suspect]
     Indication: PRODUCT USED FOR UNKNOWN INDICATION
     Dosage: UNK
     Route: 048
  8. HYDROCHLOROTHIAZIDE [Suspect]
     Indication: PRODUCT USED FOR UNKNOWN INDICATION
     Dosage: UNK
     Route: 048
  9. METOPROLOL [Suspect]
     Indication: PRODUCT USED FOR UNKNOWN INDICATION
     Dosage: UNK
     Route: 048
  10. ZETIA [Suspect]
     Indication: PRODUCT USED FOR UNKNOWN INDICATION
     Dosage: UNK
     Route: 048
  11. SIMVASTATIN [Suspect]
     Indication: PRODUCT USED FOR UNKNOWN INDICATION
     Dosage: UNK
     Route: 048
  12. METFORMIN [Suspect]
     Indication: PRODUCT USED FOR UNKNOWN INDICATION
     Dosage: UNK
     Route: 048

REACTIONS (4)
  - Swollen tongue [Recovered/Resolved]
  - Choking [Recovered/Resolved]
  - Pruritus generalised [Recovered/Resolved]
  - Incorrect drug administration duration [Recovered/Resolved]
